FAERS Safety Report 18480617 (Version 1)
Quarter: 2020Q4

REPORT INFORMATION
  Report Type: Spontaneous
  Country: US (occurrence: US)
  Receive Date: 20201109
  Receipt Date: 20201109
  Transmission Date: 20210114
  Serious: Yes (Other)
  Sender: FDA-Public Use
  Company Number: None

PATIENT
  Age: 73 Year
  Sex: Female
  Weight: 75.2 kg

DRUGS (16)
  1. SIMVASTATIN. [Concomitant]
     Active Substance: SIMVASTATIN
  2. CAPECITABINE. [Suspect]
     Active Substance: CAPECITABINE
     Indication: BREAST CANCER FEMALE
     Route: 048
     Dates: start: 20200713
  3. LISINOPRIL. [Concomitant]
     Active Substance: LISINOPRIL
  4. PYRIDOSTIGMINE BROMIDE. [Concomitant]
     Active Substance: PYRIDOSTIGMINE BROMIDE
  5. ONDANSETRON [Concomitant]
     Active Substance: ONDANSETRON
  6. RESVERATROL [Concomitant]
     Active Substance: DIETARY SUPPLEMENT\RESVERATROL
  7. EXEMESTANE. [Suspect]
     Active Substance: EXEMESTANE
     Indication: BREAST CANCER FEMALE
     Route: 048
     Dates: start: 20200205
  8. MULTIVITAMIN [Concomitant]
     Active Substance: VITAMINS
  9. CALCIUM CITRATE [Concomitant]
     Active Substance: CALCIUM CITRATE
  10. LEXAPRO [Concomitant]
     Active Substance: ESCITALOPRAM OXALATE
  11. GLYCOPYRROLATE. [Concomitant]
     Active Substance: GLYCOPYRROLATE
  12. IBUPROFEN. [Concomitant]
     Active Substance: IBUPROFEN
  13. XGEVA [Concomitant]
     Active Substance: DENOSUMAB
  14. AMOXICILLIN. [Concomitant]
     Active Substance: AMOXICILLIN
  15. ASPIRIN. [Concomitant]
     Active Substance: ASPIRIN
  16. COENZYME Q-10 [Concomitant]

REACTIONS (1)
  - Secretion discharge [None]

NARRATIVE: CASE EVENT DATE: 20201109
